FAERS Safety Report 7792510-4 (Version None)
Quarter: 2011Q4

REPORT INFORMATION
  Report Type: 
  Country: None (occurrence: None)
  Receive Date: 20111003
  Receipt Date: 20110922
  Transmission Date: 20120403
  Serious: Yes (Other)
  Sender: FDA-Public Use
  Company Number: CA-JNJFOC-20110910686

PATIENT
  Sex: Male
  Weight: 73.5 kg

DRUGS (1)
  1. REMICADE [Suspect]
     Indication: CROHN'S DISEASE
     Dosage: TREATMENT INITIATED 14-16 MONTHS AGO
     Route: 042

REACTIONS (1)
  - NEPHROLITHIASIS [None]
